FAERS Safety Report 5485785-8 (Version None)
Quarter: 2007Q4

REPORT INFORMATION
  Report Type: 
  Country: None (occurrence: None)
  Receive Date: 20071015
  Receipt Date: 20071008
  Transmission Date: 20080405
  Serious: Yes (Other)
  Sender: FDA-Public Use
  Company Number: US-SOLVAY-00207032249

PATIENT
  Age: 11782 Day
  Sex: Female
  Weight: 56.5 kg

DRUGS (2)
  1. PROMETRIUM [Suspect]
     Indication: PRENATAL CARE
     Dosage: DAILY DOSE: 200 MILLIGRAM(S)
     Route: 048
     Dates: start: 20070318, end: 20070416
  2. PRENATAL VITAMINS [Concomitant]
     Indication: PREGNANCY
     Dosage: DAILY DOSE:  UNKNOWN
     Route: 048
     Dates: start: 20070101

REACTIONS (2)
  - ECTOPIC PREGNANCY [None]
  - METRORRHAGIA [None]
